FAERS Safety Report 6709394-5 (Version None)
Quarter: 2010Q2

REPORT INFORMATION
  Report Type: 
  Country: None (occurrence: None)
  Receive Date: 20100503
  Receipt Date: 20100503
  Transmission Date: 20101027
  Serious: Yes (Other)
  Sender: FDA-Public Use
  Company Number: None

PATIENT
  Age: 7 Year
  Sex: Female
  Weight: 25.855 kg

DRUGS (1)
  1. CHILDREN'S ZYRTEC ALLERGY [Suspect]
     Indication: MULTIPLE ALLERGIES
     Dosage: 1 TSP ONCE A DAY PO
     Route: 048
     Dates: start: 20100319, end: 20100319

REACTIONS (2)
  - PRODUCT QUALITY ISSUE [None]
  - VOMITING [None]
